FAERS Safety Report 9406802 (Version 1)
Quarter: 2013Q3

REPORT INFORMATION
  Report Type: Other
  Country: GB (occurrence: GB)
  Receive Date: 20130718
  Receipt Date: 20130718
  Transmission Date: 20140515
  Serious: Yes (Other)
  Sender: FDA-Public Use
  Company Number: GB-LUPIN PHARMACEUTICALS INC.-E2B_00001048

PATIENT
  Age: 71 Year
  Sex: Female
  Weight: 73.5 kg

DRUGS (2)
  1. LOSARTAN [Suspect]
     Indication: PRODUCT USED FOR UNKNOWN INDICATION
     Route: 065
     Dates: start: 20130522
  2. RAMIPRIL [Concomitant]
     Indication: PRODUCT USED FOR UNKNOWN INDICATION
     Route: 065
     Dates: start: 20130318, end: 20130412

REACTIONS (3)
  - Tongue blistering [Recovering/Resolving]
  - Lip swelling [Recovering/Resolving]
  - Dyspnoea [Unknown]
